FAERS Safety Report 6574380-5 (Version None)
Quarter: 2010Q1

REPORT INFORMATION
  Report Type: 
  Country: None (occurrence: None)
  Receive Date: 20100208
  Receipt Date: 20100128
  Transmission Date: 20100710
  Serious: Yes (Hospitalization)
  Sender: FDA-Public Use
  Company Number: IT-GENENTECH-295918

PATIENT
  Sex: Male

DRUGS (8)
  1. MABTHERA [Suspect]
     Indication: PRIMARY MEDIASTINAL LARGE B-CELL LYMPHOMA
     Dosage: 375 MG/M2, UNK
     Route: 042
     Dates: start: 20090917, end: 20091024
  2. MABTHERA [Suspect]
     Dosage: 375 MG/M2, UNK
     Route: 042
  3. ENDOXAN [Suspect]
     Indication: PRIMARY MEDIASTINAL LARGE B-CELL LYMPHOMA
     Dosage: 200 MG/M2, UNK
     Route: 042
     Dates: start: 20090814, end: 20091024
  4. ENDOXAN [Suspect]
     Route: 042
  5. EPIRUBICINA [Suspect]
     Indication: PRIMARY MEDIASTINAL LARGE B-CELL LYMPHOMA
     Dosage: 40 MG/M2, UNK
     Route: 042
     Dates: start: 20090814, end: 20091024
  6. EPIRUBICINA [Suspect]
     Route: 042
  7. VINCRISTINE [Suspect]
     Indication: PRIMARY MEDIASTINAL LARGE B-CELL LYMPHOMA
     Dosage: 1 MG/M2, UNK
     Route: 042
     Dates: start: 20090814, end: 20091024
  8. VINCRISTINE [Suspect]
     Route: 042

REACTIONS (4)
  - ASTHENIA [None]
  - BRONCHOPNEUMONIA [None]
  - COUGH [None]
  - NORMOCHROMIC NORMOCYTIC ANAEMIA [None]
